FAERS Safety Report 20006093 (Version 3)
Quarter: 2022Q4

REPORT INFORMATION
  Report Type: Spontaneous
  Country: IE (occurrence: IE)
  Receive Date: 20211028
  Receipt Date: 20221129
  Transmission Date: 20230112
  Serious: Yes (Hospitalization, Other)
  Sender: FDA-Public Use
  Company Number: IE-VELOXIS PHARMACEUTICALS-2021VELIE-000520

PATIENT
  Age: 59 Year
  Sex: Female

DRUGS (15)
  1. MYCOPHENOLATE MOFETIL [Suspect]
     Active Substance: MYCOPHENOLATE MOFETIL
     Indication: Prophylaxis against transplant rejection
     Dosage: UNK
     Route: 065
  2. MYCOPHENOLATE MOFETIL [Suspect]
     Active Substance: MYCOPHENOLATE MOFETIL
     Indication: Immunosuppressant drug therapy
  3. FLUCYTOSINE [Suspect]
     Active Substance: FLUCYTOSINE
     Indication: Product used for unknown indication
     Dosage: UNK
     Route: 048
  4. FLUCYTOSINE [Suspect]
     Active Substance: FLUCYTOSINE
     Indication: Candida infection
  5. AMPHOTERICIN B [Suspect]
     Active Substance: AMPHOTERICIN B
     Indication: Product used for unknown indication
     Dosage: UNK
     Route: 065
  6. AMPHOTERICIN B [Suspect]
     Active Substance: AMPHOTERICIN B
     Indication: Candida infection
  7. FLUCONAZOLE [Interacting]
     Active Substance: FLUCONAZOLE
     Indication: Candida infection
     Dosage: LIFELONG
     Route: 048
  8. CASPOFUNGIN ACETATE [Suspect]
     Active Substance: CASPOFUNGIN ACETATE
     Indication: Product used for unknown indication
     Dosage: UNK
     Route: 042
  9. TACROLIMUS [Interacting]
     Active Substance: TACROLIMUS
     Indication: Prophylaxis against transplant rejection
     Dosage: UNK
     Route: 065
  10. TACROLIMUS [Interacting]
     Active Substance: TACROLIMUS
     Indication: Immunosuppressant drug therapy
  11. ENOXAPARIN [Concomitant]
     Active Substance: ENOXAPARIN
     Indication: Pulmonary embolism
     Dosage: UNK
     Route: 065
  12. MIDODRINE [Concomitant]
     Active Substance: MIDODRINE
     Indication: Labile blood pressure
     Dosage: UNK
     Route: 065
  13. TAMOXIFEN [Concomitant]
     Active Substance: TAMOXIFEN
     Indication: Breast cancer
     Dosage: UNK
     Route: 065
  14. PIPERACILLIN AND TAZOBACTAM [Concomitant]
     Active Substance: PIPERACILLIN SODIUM\TAZOBACTAM SODIUM
     Indication: Evidence based treatment
     Dosage: UNK
     Route: 065
  15. HEPARIN [Concomitant]
     Active Substance: HEPARIN SODIUM
     Indication: Pulmonary embolism
     Route: 065

REACTIONS (21)
  - Disseminated intravascular coagulation [Recovered/Resolved]
  - Drug level increased [Recovered/Resolved]
  - Perforation [Recovering/Resolving]
  - Tricuspid valve stenosis [Recovering/Resolving]
  - Depressed mood [Recovering/Resolving]
  - Fall [Recovering/Resolving]
  - Pulmonary embolism [Recovering/Resolving]
  - Device related infection [Recovered/Resolved]
  - Endocarditis candida [Recovered/Resolved]
  - Systemic candida [Recovered/Resolved]
  - Candida sepsis [Recovered/Resolved]
  - Urinary tract infection [Recovered/Resolved]
  - Candida infection [Recovered/Resolved]
  - Acute kidney injury [Recovered/Resolved]
  - Confusional state [Recovering/Resolving]
  - Fungaemia [Recovering/Resolving]
  - Decreased appetite [Recovering/Resolving]
  - Toxicity to various agents [Recovered/Resolved]
  - Drug ineffective [Unknown]
  - Labelled drug-drug interaction medication error [Recovering/Resolving]
  - Off label use [Unknown]
